FAERS Safety Report 7901410-8 (Version None)
Quarter: 2011Q4

REPORT INFORMATION
  Report Type: 
  Country: None (occurrence: None)
  Receive Date: 20111108
  Receipt Date: 20111102
  Transmission Date: 20120403
  Serious: Yes (Death)
  Sender: FDA-Public Use
  Company Number: CA-PFIZER INC-2011268225

PATIENT
  Age: 45 Year
  Sex: Male

DRUGS (1)
  1. BENEFIX [Suspect]

REACTIONS (2)
  - ROAD TRAFFIC ACCIDENT [None]
  - ACCIDENTAL DEATH [None]
